FAERS Safety Report 7490574-9 (Version None)
Quarter: 2011Q2

REPORT INFORMATION
  Report Type: 
  Country: None (occurrence: None)
  Receive Date: 20110519
  Receipt Date: 20110506
  Transmission Date: 20111010
  Serious: Yes (Hospitalization, Other)
  Sender: FDA-Public Use
  Company Number: US-ELI_LILLY_AND_COMPANY-US201105003414

PATIENT
  Sex: Female
  Weight: 56.68 kg

DRUGS (1)
  1. FORTEO [Suspect]

REACTIONS (5)
  - NECROSIS [None]
  - BLOOD PRESSURE FLUCTUATION [None]
  - CALCIFICATION OF MUSCLE [None]
  - FIBROSIS [None]
  - HEADACHE [None]
